FAERS Safety Report 21553954 (Version 1)
Quarter: 2022Q4

REPORT INFORMATION
  Report Type: Report from Study
  Country: US (occurrence: US)
  Receive Date: 20221104
  Receipt Date: 20221104
  Transmission Date: 20230113
  Serious: Yes (Other)
  Sender: FDA-Public Use
  Company Number: US-CSLP-61510380824-V11231554-22

PATIENT
  Age: 31 Year
  Sex: Female

DRUGS (4)
  1. ANTICOAGULANT SODIUM CITRATE [Suspect]
     Active Substance: SODIUM CITRATE
     Indication: Anticoagulant therapy
     Route: 050
     Dates: start: 20221026, end: 20221026
  2. VITAMIN C [Concomitant]
     Active Substance: ASCORBIC ACID
     Indication: Prophylaxis
  3. MIDOL [Concomitant]
     Active Substance: IBUPROFEN
     Indication: Pain
  4. MIRENA [Concomitant]
     Active Substance: LEVONORGESTREL
     Indication: Contraception
     Route: 015

REACTIONS (12)
  - Loss of consciousness [Recovered/Resolved]
  - Thirst [Recovered/Resolved]
  - Tetany [Recovered/Resolved]
  - Flushing [Recovered/Resolved]
  - Hyperhidrosis [Recovered/Resolved]
  - Pallor [Recovered/Resolved]
  - Cold sweat [Recovered/Resolved]
  - Anal incontinence [Recovered/Resolved]
  - Feeling hot [Recovered/Resolved]
  - Urinary incontinence [Recovered/Resolved]
  - Tunnel vision [Recovered/Resolved]
  - Bradycardia [Not Recovered/Not Resolved]

NARRATIVE: CASE EVENT DATE: 20221026
